FAERS Safety Report 8555536-9 (Version None)
Quarter: 2012Q3

REPORT INFORMATION
  Report Type: 
  Country: None (occurrence: None)
  Receive Date: 20120731
  Receipt Date: 20110831
  Transmission Date: 20120928
  Serious: No
  Sender: FDA-Public Use
  Company Number: US-ASTRAZENECA-2011SE00310

PATIENT
  Age: 61 Year
  Sex: Female

DRUGS (6)
  1. SEROQUEL [Suspect]
     Indication: SCHIZOPHRENIA
     Route: 048
     Dates: start: 20060101
  2. SEROQUEL [Suspect]
     Indication: HALLUCINATION, AUDITORY
     Route: 048
     Dates: start: 20060101
  3. SEROQUEL [Suspect]
     Route: 048
  4. SEROQUEL [Suspect]
     Route: 048
  5. SEROQUEL [Suspect]
     Indication: BIPOLAR DISORDER
     Route: 048
     Dates: start: 20060101
  6. SEROQUEL [Suspect]
     Route: 048

REACTIONS (7)
  - TACHYPHRENIA [None]
  - ABSCESS ORAL [None]
  - ANXIETY [None]
  - IMPAIRED WORK ABILITY [None]
  - NERVOUSNESS [None]
  - DRUG DOSE OMISSION [None]
  - HALLUCINATION, AUDITORY [None]
